FAERS Safety Report 12374721 (Version 2)
Quarter: 2016Q2

REPORT INFORMATION
  Report Type: Spontaneous
  Country: US (occurrence: US)
  Receive Date: 20160517
  Receipt Date: 20160531
  Transmission Date: 20160815
  Serious: Yes (Hospitalization)
  Sender: FDA-Public Use
  Company Number: US-PFIZER INC-2016228080

PATIENT
  Age: 81 Year
  Sex: Female
  Weight: 56 kg

DRUGS (4)
  1. LEVOTHYROXINE. [Concomitant]
     Active Substance: LEVOTHYROXINE
     Dosage: UNK
     Dates: start: 1998
  2. NEURONTIN [Suspect]
     Active Substance: GABAPENTIN
     Indication: NEUROPATHY PERIPHERAL
     Dosage: TOTAL OF 4800MG A DAY,(800MG SIX TIMES DAILY)
     Route: 048
     Dates: start: 2010
  3. AMIODARONE [Concomitant]
     Active Substance: AMIODARONE
     Dosage: UNK
  4. NEURONTIN [Suspect]
     Active Substance: GABAPENTIN
     Dosage: LOWERED TO 100MG THREE TIMES A DAY
     Route: 048
     Dates: end: 2014

REACTIONS (10)
  - Myalgia [Recovered/Resolved]
  - Confusional state [Recovered/Resolved]
  - Gait disturbance [Recovered/Resolved]
  - Aggression [Recovered/Resolved]
  - Product use issue [Recovered/Resolved]
  - Overdose [Recovered/Resolved]
  - Muscle spasms [Recovered/Resolved]
  - Arthralgia [Recovered/Resolved]
  - Thinking abnormal [Recovered/Resolved]
  - Pain [Recovered/Resolved]
